FAERS Safety Report 9339710 (Version 3)
Quarter: 2014Q2

REPORT INFORMATION
  Report Type: Spontaneous
  Country: BR (occurrence: BR)
  Receive Date: 20130610
  Receipt Date: 20140404
  Transmission Date: 20141212
  Serious: Yes (Other)
  Sender: FDA-Public Use
  Company Number: PHHY2013BR058065

PATIENT
  Age: 5 Year
  Sex: Male
  Weight: 18 kg

DRUGS (1)
  1. CATAFLAM [Suspect]
     Indication: OROPHARYNGEAL PAIN
     Dosage: 18 DRP, BID (TWICE DAILY)
     Route: 048
     Dates: start: 20130524, end: 20130525

REACTIONS (5)
  - Scarlet fever [Recovered/Resolved]
  - Rash erythematous [Recovered/Resolved]
  - Parosmia [Recovered/Resolved]
  - Dysgeusia [Recovered/Resolved]
  - Abdominal pain [Recovered/Resolved]
